FAERS Safety Report 7094746-7 (Version None)
Quarter: 2010Q4

REPORT INFORMATION
  Report Type: 
  Country: None (occurrence: None)
  Receive Date: 20101110
  Receipt Date: 20101026
  Transmission Date: 20110411
  Serious: Yes (Hospitalization)
  Sender: FDA-Public Use
  Company Number: US-PFIZER INC-2010138654

PATIENT
  Sex: Male
  Weight: 61.7 kg

DRUGS (12)
  1. BLINDED *NO SUBJECT DRUG [Suspect]
     Indication: DEMENTIA ALZHEIMER'S TYPE
     Dosage: UNK
     Dates: start: 20100426
  2. PLACEBO [Suspect]
     Indication: DEMENTIA ALZHEIMER'S TYPE
     Dosage: UNK
     Dates: start: 20100426
  3. BLINDED BAPINEUZUMAB [Suspect]
     Indication: DEMENTIA ALZHEIMER'S TYPE
     Dosage: UNK
     Dates: start: 20100426
  4. XANAX [Suspect]
     Indication: SEDATION
     Dosage: 0.5 MG, AS NEEDED
     Route: 048
  5. XANAX [Suspect]
     Indication: AGITATION
  6. XANAX [Suspect]
     Indication: RESTLESSNESS
  7. NAMENDA [Concomitant]
     Indication: DEMENTIA ALZHEIMER'S TYPE
     Dosage: 10 MG, 2X/DAY
     Route: 048
     Dates: start: 20080315
  8. ENOXAPARIN SODIUM [Concomitant]
     Indication: PROPHYLAXIS
     Dosage: UNK
  9. EXELON [Suspect]
     Indication: DEMENTIA ALZHEIMER'S TYPE
     Dosage: 9.6 MG, UNK
     Dates: start: 20071215
  10. CITALOPRAM HYDROBROMIDE [Suspect]
     Indication: ANTIDEPRESSANT THERAPY
     Dosage: 20 MG, UNK
     Route: 048
     Dates: start: 20100201, end: 20100610
  11. CITALOPRAM [Concomitant]
     Dosage: 30 MG, DAILY
     Route: 048
     Dates: start: 20100610
  12. ZYPREXA [Concomitant]
     Indication: MENTAL STATUS CHANGES
     Dosage: UNK
     Dates: start: 20101022, end: 20101023

REACTIONS (7)
  - AGITATION [None]
  - BLOOD CREATINE PHOSPHOKINASE INCREASED [None]
  - DEMENTIA ALZHEIMER'S TYPE [None]
  - DEPRESSION [None]
  - FALL [None]
  - MENTAL DISORDER [None]
  - RESTLESSNESS [None]
